FAERS Safety Report 10360722 (Version 1)
Quarter: 2014Q3

REPORT INFORMATION
  Report Type: Spontaneous
  Country: RU (occurrence: RU)
  Receive Date: 20140804
  Receipt Date: 20140804
  Transmission Date: 20150326
  Serious: Yes (Life-Threatening)
  Sender: FDA-Public Use
  Company Number: RU-ASTRAZENECA-2014SE56084

PATIENT
  Age: 70 Year
  Sex: Female

DRUGS (2)
  1. BRILINTA [Suspect]
     Active Substance: TICAGRELOR
     Indication: PERCUTANEOUS CORONARY INTERVENTION
     Route: 048
  2. BRILINTA [Suspect]
     Active Substance: TICAGRELOR
     Indication: PERCUTANEOUS CORONARY INTERVENTION
     Dosage: 180 MG, LOADING DOSE
     Route: 048

REACTIONS (1)
  - Myocardial infarction [Recovered/Resolved]
